FAERS Safety Report 7124642-8 (Version None)
Quarter: 2010Q4

REPORT INFORMATION
  Report Type: 
  Country: None (occurrence: None)
  Receive Date: 20101129
  Receipt Date: 20101115
  Transmission Date: 20110411
  Serious: Yes (Other)
  Sender: FDA-Public Use
  Company Number: US-ELI_LILLY_AND_COMPANY-US201006004969

PATIENT
  Sex: Female
  Weight: 76.644 kg

DRUGS (23)
  1. FORTEO [Suspect]
     Indication: OSTEOARTHRITIS
     Dosage: UNK, UNKNOWN
     Route: 065
     Dates: end: 20101001
  2. FORTEO [Suspect]
     Dosage: 20 UG, DAILY (1/D)
     Dates: end: 20100826
  3. LISINOPRIL [Concomitant]
     Dosage: 2.5 MG, 2/D
  4. LISINOPRIL [Concomitant]
     Dosage: 20 MG, DAILY (1/D)
  5. OMEPRAZOLE [Concomitant]
     Dosage: 20 MG, DAILY (1/D)
  6. IRON [Concomitant]
     Dosage: 325 MG, 2/D
  7. GABAPENTIN [Concomitant]
     Dosage: 600 MG, 2/D
  8. PRAVASTATIN [Concomitant]
     Dosage: 40 MG, DAILY (1/D)
  9. PREDNISONE [Concomitant]
     Dosage: 5 MG, 2/D
  10. SODIUM BICARBONATE [Concomitant]
     Dosage: 650 MG, 2/D
  11. SODIUM BICARBONATE [Concomitant]
     Dosage: UNK, DAILY (1/D)
  12. METHOTREXATE [Concomitant]
     Dosage: 2.5 MG, WEEKLY (1/W)
  13. FOLIC ACID [Concomitant]
     Dosage: 5 MG, WEEKLY (1/W)
  14. OSCAL 500-D [Concomitant]
     Dosage: 500 MG, 2/D
  15. STOOL SOFTENER [Concomitant]
     Dosage: UNK, DAILY (1/D)
  16. PRORENAL [Concomitant]
     Dosage: 2 D/F, DAILY (1/D)
  17. DAYPRO [Concomitant]
     Dosage: 1200 MG, DAILY (1/D)
  18. PRAVACHOL [Concomitant]
  19. TYLENOL (CAPLET) [Concomitant]
     Dosage: UNK, AS NEEDED
  20. XANAX [Concomitant]
     Dosage: 0.25 MG, AS NEEDED
  21. CALTRATE [Concomitant]
     Dosage: UNK, 2/D
  22. VIT D [Concomitant]
     Dosage: UNK, DAILY (1/D)
  23. ALBUTEROL [Concomitant]

REACTIONS (8)
  - GAIT DISTURBANCE [None]
  - LUNG DISORDER [None]
  - LYMPHADENOPATHY [None]
  - MUSCLE SPASMS [None]
  - OFF LABEL USE [None]
  - PAIN [None]
  - SMALL CELL LUNG CANCER STAGE UNSPECIFIED [None]
  - URINARY TRACT INFECTION [None]
